FAERS Safety Report 8265739-9 (Version None)
Quarter: 2012Q2

REPORT INFORMATION
  Report Type: 
  Country: None (occurrence: None)
  Receive Date: 20120406
  Receipt Date: 20120329
  Transmission Date: 20120825
  Serious: Yes (Hospitalization, Congenital Anomaly)
  Sender: FDA-Public Use
  Company Number: GB-TEVA-331047ISR

PATIENT
  Sex: Male
  Weight: 3.3 kg

DRUGS (1)
  1. OLANZAPINE [Suspect]
     Indication: BIPOLAR DISORDER
     Route: 064

REACTIONS (2)
  - FEEDING DISORDER NEONATAL [None]
  - HYPOTONIA NEONATAL [None]
